FAERS Safety Report 13645913 (Version 1)
Quarter: 2017Q2

REPORT INFORMATION
  Report Type: Spontaneous
  Country: US (occurrence: US)
  Receive Date: 20170612
  Receipt Date: 20170612
  Transmission Date: 20170830
  Serious: Yes (Hospitalization)
  Sender: FDA-Public Use
  Company Number: None

PATIENT
  Age: 80 Year
  Sex: Male
  Weight: 87 kg

DRUGS (1)
  1. WARFARIN [Suspect]
     Active Substance: WARFARIN
     Indication: ATRIAL FIBRILLATION
     Route: 048
     Dates: start: 20030101

REACTIONS (9)
  - Large intestine polyp [None]
  - Faeces discoloured [None]
  - Anticoagulation drug level above therapeutic [None]
  - Gastric haemorrhage [None]
  - Haematochezia [None]
  - Dyspnoea [None]
  - Blood pressure decreased [None]
  - Melaena [None]
  - Dizziness [None]

NARRATIVE: CASE EVENT DATE: 20170606
